FAERS Safety Report 19678307 (Version 8)
Quarter: 2021Q3

REPORT INFORMATION
  Report Type: Report from Study
  Country: TR (occurrence: TR)
  Receive Date: 20210809
  Receipt Date: 20210922
  Transmission Date: 20211014
  Serious: Yes (Death, Hospitalization)
  Sender: FDA-Public Use
  Company Number: TR-ROCHE-2882466

PATIENT
  Age: 72 Year
  Sex: Male
  Weight: 67.5 kg

DRUGS (26)
  1. PALONOSETRON HYDROCHLORIDE. [Concomitant]
     Active Substance: PALONOSETRON HYDROCHLORIDE
     Route: 042
     Dates: start: 20210615, end: 20210615
  2. PANTOPRAZOLE SODIUM SESQUIHYDRATE [Concomitant]
     Active Substance: PANTOPRAZOLE SODIUM
     Route: 042
     Dates: start: 20210525, end: 20210525
  3. PHENIRAMINE HYDROGEN MALEATE [Concomitant]
     Route: 042
     Dates: start: 20210615, end: 20210615
  4. ATEZOLIZUMAB. [Suspect]
     Active Substance: ATEZOLIZUMAB
     Indication: MALIGNANT NEOPLASM OF UNKNOWN PRIMARY SITE
     Dosage: ON 06/JUL/2021, HE RECEIVED LAST DOSE OF ATEZOLIZUMAB (1200 MG) PRIOR TO ONSET OF SERIOUS ADVERSE EV
     Route: 041
     Dates: start: 20210706
  5. METOPROLOL SUCCINATE. [Concomitant]
     Active Substance: METOPROLOL SUCCINATE
     Route: 048
  6. FELODIPINE. [Concomitant]
     Active Substance: FELODIPINE
     Route: 048
  7. CARBOPLATIN. [Suspect]
     Active Substance: CARBOPLATIN
     Dosage: ON 06/JUL/2021, HE RECEIVED LAST DOSE OF CARBOPLATIN (500 MG) PRIOR TO ONSET OF SERIOUS ADVERSE EVEN
     Route: 042
     Dates: start: 20210706
  8. ACETYLSALICYLIC ACID [Concomitant]
     Active Substance: ASPIRIN
     Route: 048
  9. MAGNESIUM OXIDE. [Concomitant]
     Active Substance: MAGNESIUM OXIDE
     Route: 048
     Dates: start: 20210803
  10. PARACETAMOL [Concomitant]
     Active Substance: ACETAMINOPHEN
     Indication: DEVICE RELATED INFECTION
     Route: 042
     Dates: start: 20210809, end: 20210809
  11. PALONOSETRON HYDROCHLORIDE. [Concomitant]
     Active Substance: PALONOSETRON HYDROCHLORIDE
     Route: 042
     Dates: start: 20210525, end: 20210525
  12. DEXAMETHASONE. [Concomitant]
     Active Substance: DEXAMETHASONE
     Route: 042
     Dates: start: 20210615, end: 20210615
  13. DEXAMETHASONE. [Concomitant]
     Active Substance: DEXAMETHASONE
     Route: 042
     Dates: start: 20210706, end: 20210706
  14. PHENIRAMINE HYDROGEN MALEATE [Concomitant]
     Route: 042
     Dates: start: 20210706, end: 20210706
  15. MAGNESIUM OXIDE. [Concomitant]
     Active Substance: MAGNESIUM OXIDE
     Route: 048
     Dates: start: 20210623
  16. PHENIRAMINE HYDROGEN MALEATE [Concomitant]
     Route: 042
     Dates: start: 20210525, end: 20210525
  17. TAZOCIN [Concomitant]
     Active Substance: PIPERACILLIN SODIUM\TAZOBACTAM SODIUM
     Indication: DEVICE RELATED INFECTION
     Route: 042
     Dates: start: 20210808
  18. INSULIN GLARGINE [Concomitant]
     Active Substance: INSULIN GLARGINE
     Route: 042
     Dates: start: 20210810
  19. DEXAMETHASONE. [Concomitant]
     Active Substance: DEXAMETHASONE
     Route: 042
     Dates: start: 20210525, end: 20210525
  20. METADEM [Concomitant]
     Indication: DEVICE RELATED INFECTION
     Route: 042
     Dates: start: 20210808
  21. CARBOPLATIN. [Suspect]
     Active Substance: CARBOPLATIN
     Indication: MALIGNANT NEOPLASM OF UNKNOWN PRIMARY SITE
     Dosage: ON 27/APR/2021, HE RECEIVED LAST DOSE OF CARBOPLATIN (500 MG) PRIOR TO ONSET OF SERIOUS ADVERSE EVEN
     Route: 042
     Dates: start: 20210427
  22. PACLITAXEL. [Suspect]
     Active Substance: PACLITAXEL
     Indication: MALIGNANT NEOPLASM OF UNKNOWN PRIMARY SITE
     Dosage: ON 27/APR/2021, HE RECEIVED LAST DOSE OF PACLITAXEL (300 MG) PRIOR TO ONSET OF SERIOUS ADVERSE EVENT
     Route: 042
     Dates: start: 20210427
  23. PACLITAXEL. [Suspect]
     Active Substance: PACLITAXEL
     Dosage: ON 06/JUL/2021, HE RECEIVED LAST DOSE OF PACLITAXEL (300 MG) PRIOR TO ONSET OF SERIOUS ADVERSE EVENT
     Route: 042
     Dates: start: 20210706
  24. ZINC SULFATE MONOHYDRATE. [Concomitant]
     Active Substance: ZINC SULFATE MONOHYDRATE
     Route: 048
     Dates: start: 20210623
  25. PREGABALIN. [Concomitant]
     Active Substance: PREGABALIN
     Indication: NEUROPATHY PERIPHERAL
     Route: 048
     Dates: start: 20210811
  26. ONDANSETRON HYDROCHLORIDE. [Concomitant]
     Active Substance: ONDANSETRON HYDROCHLORIDE
     Route: 042
     Dates: start: 20210808

REACTIONS (1)
  - Liver function test abnormal [Not Recovered/Not Resolved]

NARRATIVE: CASE EVENT DATE: 20210727
